FAERS Safety Report 12954037 (Version 1)
Quarter: 2016Q4

REPORT INFORMATION
  Report Type: Report from Study
  Country: US (occurrence: US)
  Receive Date: 20161118
  Receipt Date: 20161118
  Transmission Date: 20170207
  Serious: Yes (Hospitalization, Other)
  Sender: FDA-Public Use
  Company Number: US-ROCHE-1853616

PATIENT

DRUGS (4)
  1. RITUXIMAB [Suspect]
     Active Substance: RITUXIMAB
     Indication: NON-HODGKIN^S LYMPHOMA
     Route: 042
  2. YTTRIUM-90 IBRITUMOMAB TIUXETAN [Suspect]
     Active Substance: IBRITUMOMAB TIUXETAN
     Indication: NON-HODGKIN^S LYMPHOMA
     Route: 042
  3. RITUXIMAB [Suspect]
     Active Substance: RITUXIMAB
     Dosage: ON DAY 1 AND DAY 8
     Route: 042
  4. INDIUM-111 IBRITUMOMAB TIUXETAN [Suspect]
     Active Substance: IBRITUMOMAB TIUXETAN
     Indication: NON-HODGKIN^S LYMPHOMA
     Route: 042

REACTIONS (18)
  - Sepsis [Recovered/Resolved]
  - Abdominal pain [Unknown]
  - Pneumonia [Unknown]
  - Neutropenia [Unknown]
  - Neck pain [Unknown]
  - Tumour pain [Unknown]
  - Myelodysplastic syndrome [Unknown]
  - Urinary tract infection [Recovered/Resolved]
  - Thrombocytopenia [Unknown]
  - Pyrexia [Unknown]
  - Vaginal haemorrhage [Unknown]
  - Pruritus [Unknown]
  - Cellulitis [Unknown]
  - Pancytopenia [Unknown]
  - Gastroenteritis [Recovered/Resolved]
  - Anaemia [Unknown]
  - Asthenia [Unknown]
  - Deep vein thrombosis [Unknown]
